FAERS Safety Report 6222053-0 (Version None)
Quarter: 2009Q2

REPORT INFORMATION
  Report Type: 
  Country: None (occurrence: None)
  Receive Date: 20090608
  Receipt Date: 20090608
  Transmission Date: 20091009
  Serious: Yes (Other)
  Sender: FDA-Public Use
  Company Number: None

PATIENT
  Sex: Male
  Weight: 129.2752 kg

DRUGS (3)
  1. FENTANYL TRANSDERMAL SYSTEM [Suspect]
     Indication: THORACIC OUTLET SYNDROME
     Dosage: -1- 75 MCG/HR SYSTEM EVERY 48 HOURS TRANSDERMAL
     Route: 062
     Dates: start: 20090401, end: 20090420
  2. OXYCODONE [Concomitant]
  3. TRAZODONE HCL [Concomitant]

REACTIONS (5)
  - DRUG INEFFECTIVE [None]
  - INAPPROPRIATE SCHEDULE OF DRUG ADMINISTRATION [None]
  - PAIN [None]
  - PRODUCT QUALITY ISSUE [None]
  - PRODUCT SUBSTITUTION ISSUE [None]
